FAERS Safety Report 6825345-7 (Version None)
Quarter: 2010Q3

REPORT INFORMATION
  Report Type: 
  Country: None (occurrence: None)
  Receive Date: 20100708
  Receipt Date: 20061201
  Transmission Date: 20110219
  Serious: Yes (Other)
  Sender: FDA-Public Use
  Company Number: US-PFIZER INC-2006149230

PATIENT
  Sex: Male
  Weight: 117.93 kg

DRUGS (1)
  1. CHANTIX [Suspect]
     Indication: SMOKING CESSATION THERAPY
     Route: 048
     Dates: start: 20061101, end: 20061128

REACTIONS (3)
  - ABNORMAL DREAMS [None]
  - ERECTILE DYSFUNCTION [None]
  - INSOMNIA [None]
